FAERS Safety Report 6639267-8 (Version None)
Quarter: 2010Q1

REPORT INFORMATION
  Report Type: 
  Country: None (occurrence: None)
  Receive Date: 20100315
  Receipt Date: 20100302
  Transmission Date: 20100710
  Serious: Yes (Other)
  Sender: FDA-Public Use
  Company Number: 232184J10USA

PATIENT
  Age: 61 Year
  Sex: Male

DRUGS (2)
  1. REBIF [Suspect]
     Indication: MULTIPLE SCLEROSIS
     Dosage: 44 MCG, 3 IN 1 WEEKS, SUBCUTANEOUS
     Route: 058
     Dates: start: 20030824
  2. ADVIL LIQUI-GELS [Concomitant]

REACTIONS (5)
  - CONCUSSION [None]
  - FALL [None]
  - HEADACHE [None]
  - NAUSEA [None]
  - RADIUS FRACTURE [None]
